FAERS Safety Report 16355348 (Version 1)
Quarter: 2019Q2

REPORT INFORMATION
  Report Type: Spontaneous
  Country: DE (occurrence: DE)
  Receive Date: 20190525
  Receipt Date: 20190525
  Transmission Date: 20190711
  Serious: Yes (Other)
  Sender: FDA-Public Use
  Company Number: DE-TEVA-2019-DE-1053521

PATIENT
  Age: 66 Year
  Sex: Male
  Weight: 50 kg

DRUGS (5)
  1. CALCIUM-DURA [Concomitant]
     Indication: OSTEOPOROSIS
     Dosage: 500 MG, QD
     Route: 048
     Dates: start: 200101
  2. HYDROCHLOROTHIAZID [Suspect]
     Active Substance: HYDROCHLOROTHIAZIDE
     Indication: HYPERTENSION
     Dosage: 12.5 MG, QD
     Route: 048
     Dates: start: 200405
  3. ZOMETA [Suspect]
     Active Substance: ZOLEDRONIC ACID
     Indication: OSTEOPOROSIS
     Dosage: 4 MG, ONCE/SINGLE
     Route: 042
  4. LISINOPRIL. [Concomitant]
     Active Substance: LISINOPRIL
     Indication: HYPERTENSION
     Dosage: 10 MG/DAY
     Route: 048
     Dates: start: 200205
  5. VIGANTOLETTEN ^MERCK^ [Concomitant]
     Indication: OSTEOPOROSIS
     Dosage: 1000 UG, QD
     Route: 048
     Dates: start: 2001

REACTIONS (1)
  - Blood creatine phosphokinase increased [Not Recovered/Not Resolved]

NARRATIVE: CASE EVENT DATE: 200308
